FAERS Safety Report 16622734 (Version 6)
Quarter: 2019Q3

REPORT INFORMATION
  Report Type: Report from Study
  Country: US (occurrence: US)
  Receive Date: 20190723
  Receipt Date: 20190919
  Transmission Date: 20191004
  Serious: Yes (Hospitalization, Other)
  Sender: FDA-Public Use
  Company Number: US-ACTELION-A-NJ2019-193281

PATIENT
  Sex: Female
  Weight: 100.23 kg

DRUGS (3)
  1. OPSUMIT [Suspect]
     Active Substance: MACITENTAN
     Indication: PULMONARY ARTERIAL HYPERTENSION
     Dosage: 10 MG, QD
     Route: 048
     Dates: start: 2019
  2. ADEMPAS [Concomitant]
     Active Substance: RIOCIGUAT
  3. SILDENAFIL CITRATE. [Concomitant]
     Active Substance: SILDENAFIL CITRATE

REACTIONS (27)
  - Migraine [Unknown]
  - Colitis [Unknown]
  - Abdominal discomfort [Unknown]
  - Dyspnoea [Unknown]
  - Rhinorrhoea [Unknown]
  - Fluid retention [Unknown]
  - Arthralgia [Unknown]
  - Nasal congestion [Unknown]
  - Abdominal pain upper [Unknown]
  - Oropharyngeal pain [Unknown]
  - Rash pruritic [Unknown]
  - Chest pain [Unknown]
  - Idiopathic intracranial hypertension [Unknown]
  - Headache [Unknown]
  - Stress [Unknown]
  - Multiple allergies [Unknown]
  - Myocardial infarction [Unknown]
  - Hepatic enzyme increased [Unknown]
  - Hypertension [Unknown]
  - Dizziness [Unknown]
  - Eye pruritus [Unknown]
  - Asthenia [Unknown]
  - Oedema [Unknown]
  - Head discomfort [Unknown]
  - Fatigue [Unknown]
  - Contusion [Unknown]
  - Dry throat [Unknown]
